FAERS Safety Report 22349230 (Version 1)
Quarter: 2023Q2

REPORT INFORMATION
  Report Type: Spontaneous
  Country: JP (occurrence: JP)
  Receive Date: 20230522
  Receipt Date: 20230522
  Transmission Date: 20230721
  Serious: Yes (Death, Hospitalization, Other)
  Sender: FDA-Public Use
  Company Number: JP-GILEAD-2023-0628532

PATIENT
  Age: 72 Year
  Sex: Male

DRUGS (4)
  1. VEKLURY [Suspect]
     Active Substance: REMDESIVIR
     Indication: COVID-19
     Dosage: UNK
     Route: 065
  2. VEKLURY [Suspect]
     Active Substance: REMDESIVIR
     Dosage: UNK
     Route: 065
  3. DEXAMETHASONE [Concomitant]
     Active Substance: DEXAMETHASONE
     Indication: COVID-19
     Dosage: 6.6 MG
  4. DEXAMETHASONE [Concomitant]
     Active Substance: DEXAMETHASONE
     Dosage: UNK

REACTIONS (3)
  - Respiratory failure [Fatal]
  - COVID-19 [Unknown]
  - COVID-19 [Unknown]
